FAERS Safety Report 5000934-3 (Version None)
Quarter: 2006Q2

REPORT INFORMATION
  Report Type: 
  Country: None (occurrence: None)
  Receive Date: 20060512
  Receipt Date: 20060502
  Transmission Date: 20061013
  Serious: Yes (Other)
  Sender: FDA-Public Use
  Company Number: JP-ROCHE-447039

PATIENT
  Age: 5 Year
  Sex: Female

DRUGS (1)
  1. ROCEPHIN [Suspect]
     Dosage: DRIP DISCONTINUED.
     Route: 041
     Dates: start: 20060428, end: 20060428

REACTIONS (1)
  - SHOCK [None]
